FAERS Safety Report 18657957 (Version 2)
Quarter: 2021Q1

REPORT INFORMATION
  Report Type: Report from Study
  Country: None (occurrence: JP)
  Receive Date: 20201224
  Receipt Date: 20210111
  Transmission Date: 20210419
  Serious: Yes (Hospitalization, Other)
  Sender: FDA-Public Use
  Company Number: JP-TEVA-2020-JP-1861083

PATIENT
  Age: 2 Year
  Sex: Female

DRUGS (5)
  1. IFOSFAMIDE. [Suspect]
     Active Substance: IFOSFAMIDE
     Indication: HEPATOBLASTOMA
     Dosage: ADMINISTERED 2 CYCLES IN ITEC REGIMEN
     Route: 065
  2. ETOPOSIDE. [Suspect]
     Active Substance: ETOPOSIDE
     Indication: HEPATOBLASTOMA
     Dosage: ADMINISTERED 2 CYCLES IN ITEC REGIMEN
     Route: 065
  3. PIRARUBICIN [Suspect]
     Active Substance: PIRARUBICIN
     Indication: HEPATOBLASTOMA
     Dosage: ADMINISTERED 4 CYCLES IN CITA REGIMEN FOLLOWED BY 2 CYCLES IN ITEC REGIMEN
     Route: 065
  4. CARBOPLATIN. [Suspect]
     Active Substance: CARBOPLATIN
     Indication: HEPATOBLASTOMA
     Dosage: ADMINISTERED 2 CYCLES IN THE ITEC REGIMEN
     Route: 065
  5. CISPLATIN. [Suspect]
     Active Substance: CISPLATIN
     Indication: HEPATOBLASTOMA
     Dosage: ADMINISTERED 4 CYCLES IN CITA REGIMEN
     Route: 065

REACTIONS (1)
  - Hepatic failure [Unknown]
